FAERS Safety Report 4359731-4 (Version None)
Quarter: 2004Q2

REPORT INFORMATION
  Report Type: 
  Country: None (occurrence: None)
  Receive Date: 20040518
  Receipt Date: 20040504
  Transmission Date: 20050107
  Serious: Yes (Hospitalization)
  Sender: FDA-Public Use
  Company Number: FR-BRISTOL-MYERS SQUIBB COMPANY-12588612

PATIENT
  Age: 61 Year
  Sex: Male

DRUGS (8)
  1. ENDOXAN [Suspect]
     Route: 042
     Dates: start: 20040216, end: 20040220
  2. ADRIBLASTINE [Suspect]
     Route: 042
     Dates: start: 20040216, end: 20040216
  3. ONCOVIN [Suspect]
     Route: 042
     Dates: start: 20040216, end: 20040216
  4. PREDNISOLONE [Suspect]
     Route: 048
     Dates: start: 20040217, end: 20040220
  5. OFLOCET [Suspect]
     Route: 048
     Dates: start: 20040305, end: 20040312
  6. ORELOX [Suspect]
     Route: 048
     Dates: start: 20040305, end: 20040312
  7. ALLOPURINOL TAB [Concomitant]
  8. SECALIP [Concomitant]

REACTIONS (3)
  - AGRANULOCYTOSIS [None]
  - HYPOGAMMAGLOBULINAEMIA [None]
  - INFECTION [None]
